FAERS Safety Report 12732718 (Version 1)
Quarter: 2016Q3

REPORT INFORMATION
  Report Type: Spontaneous
  Country: US (occurrence: US)
  Receive Date: 20160910
  Receipt Date: 20160910
  Transmission Date: 20161109
  Serious: Yes (Disabling, Other)
  Sender: FDA-Public Use
  Company Number: None

PATIENT
  Age: 56 Year
  Sex: Female
  Weight: 123.75 kg

DRUGS (8)
  1. NEXXIUM [Concomitant]
  2. VITAMIN B [Concomitant]
     Active Substance: VITAMIN B
  3. EFFEXOR XR [Concomitant]
     Active Substance: VENLAFAXINE HYDROCHLORIDE
  4. LOSARTAN. [Concomitant]
     Active Substance: LOSARTAN
  5. ALBUTEROL. [Concomitant]
     Active Substance: ALBUTEROL
  6. ESTROVEN [Concomitant]
     Active Substance: DIETARY SUPPLEMENT
  7. MULTIVITAMINS [Concomitant]
     Active Substance: VITAMINS
  8. LEVOFLOXACIN. [Suspect]
     Active Substance: LEVOFLOXACIN
     Indication: BRONCHITIS
     Dosage: 10 TABLETS DAILY ORAL
     Route: 048
     Dates: start: 20160609, end: 20160615

REACTIONS (3)
  - Gait disturbance [None]
  - Tendonitis [None]
  - Pain in extremity [None]

NARRATIVE: CASE EVENT DATE: 20160610
